FAERS Safety Report 7597988-7 (Version None)
Quarter: 2011Q3

REPORT INFORMATION
  Report Type: 
  Country: None (occurrence: None)
  Receive Date: 20110708
  Receipt Date: 20110701
  Transmission Date: 20111222
  Serious: Yes (Hospitalization, Other)
  Sender: FDA-Public Use
  Company Number: PHHY2011PK59665

PATIENT
  Age: 26 Year
  Sex: Female

DRUGS (1)
  1. ISONIAZID [Suspect]
     Dosage: 50 DF, ONCE/SINGLE
     Route: 048
     Dates: start: 20080101

REACTIONS (12)
  - ALANINE AMINOTRANSFERASE INCREASED [None]
  - RESTLESSNESS [None]
  - RESPIRATORY RATE INCREASED [None]
  - MYDRIASIS [None]
  - PUPILLARY REFLEX IMPAIRED [None]
  - HYPOREFLEXIA [None]
  - GRAND MAL CONVULSION [None]
  - COMA [None]
  - BLOOD BICARBONATE DECREASED [None]
  - SUICIDE ATTEMPT [None]
  - SOMNOLENCE [None]
  - INTENTIONAL OVERDOSE [None]
